FAERS Safety Report 6859880-2 (Version None)
Quarter: 2010Q3

REPORT INFORMATION
  Report Type: 
  Country: None (occurrence: None)
  Receive Date: 20100720
  Receipt Date: 20100623
  Transmission Date: 20110219
  Serious: Yes (Hospitalization)
  Sender: FDA-Public Use
  Company Number: JP-JNJFOC-20100404036

PATIENT
  Sex: Male
  Weight: 54 kg

DRUGS (4)
  1. REMICADE [Suspect]
     Indication: CROHN'S DISEASE
     Route: 042
  2. REMICADE [Suspect]
     Dosage: TOTAL OF 1 INFUSION
     Route: 042
  3. URSO 250 [Concomitant]
     Indication: LIVER DISORDER
     Route: 048
  4. RABEPRAZOLE SODIUM [Concomitant]
     Indication: GASTROOESOPHAGEAL REFLUX DISEASE

REACTIONS (1)
  - CYTOMEGALOVIRUS INFECTION [None]
